FAERS Safety Report 7633423-8 (Version None)
Quarter: 2011Q3

REPORT INFORMATION
  Report Type: 
  Country: None (occurrence: None)
  Receive Date: 20110725
  Receipt Date: 20110721
  Transmission Date: 20111222
  Serious: Yes (Other)
  Sender: FDA-Public Use
  Company Number: US-PFIZER INC-2011166535

PATIENT
  Sex: Female
  Weight: 83.447 kg

DRUGS (7)
  1. SIMVASTATIN [Concomitant]
     Indication: BLOOD CHOLESTEROL INCREASED
     Dosage: 40 MG, UNK
  2. CHANTIX [Suspect]
     Indication: SMOKING CESSATION THERAPY
     Dosage: 0.5 MG, 1X/DAY
     Route: 048
     Dates: start: 20110707, end: 20110701
  3. GLYBURIDE AND METFORMIN HYDROCHLORIDE [Concomitant]
     Indication: DIABETES MELLITUS
     Dosage: UNK
  4. LISINOPRIL [Concomitant]
     Indication: HYPERTENSION
     Dosage: 10 MG, UNK
  5. PERIOSTAT [Concomitant]
     Indication: TOOTH DISORDER
     Dosage: 20 MG, UNK
  6. CHANTIX [Suspect]
     Dosage: UNK
     Dates: start: 20110701, end: 20110713
  7. ZOLOFT [Suspect]
     Indication: DEPRESSION
     Dosage: UNK

REACTIONS (6)
  - NAUSEA [None]
  - CONFUSIONAL STATE [None]
  - HYPOTENSION [None]
  - WEIGHT DECREASED [None]
  - DIZZINESS POSTURAL [None]
  - DEHYDRATION [None]
